FAERS Safety Report 4691797-4 (Version None)
Quarter: 2005Q2

REPORT INFORMATION
  Report Type: 
  Country: None (occurrence: None)
  Receive Date: 20050615
  Receipt Date: 20050615
  Transmission Date: 20051028
  Serious: Yes (Hospitalization)
  Sender: FDA-Public Use
  Company Number: None

PATIENT
  Age: 56 Year
  Sex: Male
  Weight: 118.8424 kg

DRUGS (2)
  1. RIBAVIRIN [Suspect]
     Indication: HEPATITIS C
     Dosage: 600 MG   BID   ORAL
     Route: 048
     Dates: start: 19990811, end: 20050510
  2. PEGINTERFERON ALFA 2A    180 MCG/ML [Suspect]
     Indication: HEPATITIS C
     Dosage: 360 MCG   ONCE WEEK   SUBCUTANEO
     Route: 058
     Dates: start: 19990711, end: 20050510

REACTIONS (5)
  - ANAEMIA [None]
  - ASTHENIA [None]
  - FEELING ABNORMAL [None]
  - LETHARGY [None]
  - PYREXIA [None]
